FAERS Safety Report 4635734-7 (Version None)
Quarter: 2005Q2

REPORT INFORMATION
  Report Type: 
  Country: None (occurrence: None)
  Receive Date: 20050413
  Receipt Date: 20050330
  Transmission Date: 20051028
  Serious: Yes (Other)
  Sender: FDA-Public Use
  Company Number: 200511325BCC

PATIENT
  Age: 16 Year
  Sex: Female
  Weight: 56.6996 kg

DRUGS (3)
  1. ALEVE [Suspect]
     Indication: ARTHRALGIA
     Dosage: SEE IMAGE
     Route: 048
     Dates: start: 20040301
  2. ONE-A-DAY ESSENTIAL VITAMIN TABLET [Suspect]
     Indication: MEDICAL DIET
     Dosage: QD, ORAL
     Route: 048
     Dates: start: 20040301
  3. TETRACYCLINE [Concomitant]

REACTIONS (1)
  - BLOOD URINE PRESENT [None]
